FAERS Safety Report 16984549 (Version 4)
Quarter: 2019Q4

REPORT INFORMATION
  Report Type: Spontaneous
  Country: US (occurrence: US)
  Receive Date: 20191101
  Receipt Date: 20191223
  Transmission Date: 20200122
  Serious: No
  Sender: FDA-Public Use
  Company Number: US-PFIZER INC-2017289069

PATIENT
  Age: 66 Year
  Sex: Male
  Weight: 85.73 kg

DRUGS (22)
  1. CAVERJECT IMPULSE [Suspect]
     Active Substance: ALPROSTADIL
     Dosage: UNK (HIGHER DOSE)
  2. DICLOFENAC SODIUM. [Concomitant]
     Active Substance: DICLOFENAC SODIUM
     Indication: PAIN
     Dosage: 75 MG, AS NEEDED; (1 TABLET BID )
     Route: 048
  3. CHANTIX [Concomitant]
     Active Substance: VARENICLINE TARTRATE
     Dosage: 1 MG, 2X/DAY
     Route: 048
  4. CHANTIX [Concomitant]
     Active Substance: VARENICLINE TARTRATE
     Dosage: UNK UNK, DAILY; (0.5 MG X 11 + 1 MG X 42 TABLET AS DIRECTED )
     Route: 048
  5. CAVERJECT IMPULSE [Suspect]
     Active Substance: ALPROSTADIL
     Dosage: 10 UG, UNK
  6. ADVAIR HFA [Concomitant]
     Active Substance: FLUTICASONE PROPIONATE\SALMETEROL XINAFOATE
     Dosage: UNK UNK, AS NEEDED; ((FLUTICASONE-SALMETEROL) 250-50 MCG/DOSE), USE ONE PUFF TWICE A DAY
  7. ALBUTEROL SULFATE. [Concomitant]
     Active Substance: ALBUTEROL SULFATE
     Dosage: UNK UNK, AS NEEDED; (108 (90 BASE) MCG/ACT ), 2 PUFFS AS NEEDED INHALATION
     Route: 045
  8. VIAGRA [Concomitant]
     Active Substance: SILDENAFIL CITRATE
     Dosage: 100 MG, AS NEEDED; (1 TABLET AS NEEDED ORALLY ONCE A DAY)
     Route: 048
  9. ASPIRIN. [Concomitant]
     Active Substance: ASPIRIN
     Dosage: 81 MG, DAILY
  10. TIAZAC [DILTIAZEM HYDROCHLORIDE] [Concomitant]
     Dosage: 360 MG, 1X/DAY
     Route: 048
  11. CHANTIX [Concomitant]
     Active Substance: VARENICLINE TARTRATE
     Dosage: UNK UNK, DAILY; (0.5 MG X 11 + 1 MG X 42 TABLET AS DIRECTED )
     Route: 048
  12. CAVERJECT IMPULSE [Suspect]
     Active Substance: ALPROSTADIL
     Dosage: UNK, AS NEEDED (DIRECTED PRN DAILY 90 DAYS)
     Route: 017
  13. ASPIRIN. [Concomitant]
     Active Substance: ASPIRIN
     Dosage: 325 MG, 1X/DAY
     Route: 048
  14. XANAX [Concomitant]
     Active Substance: ALPRAZOLAM
     Dosage: 1 MG, AS NEEDED; (THREE TIMES A DAY AS NEEDED)
     Route: 048
  15. ZANAFLEX [Concomitant]
     Active Substance: TIZANIDINE HYDROCHLORIDE
     Indication: MUSCLE SPASMS
     Dosage: UNK UNK, AS NEEDED; (1/2 -1 TABLET AS NEEDED ORALLY Q 8 HRS)
     Route: 048
  16. PAROXETINE HCL [Concomitant]
     Active Substance: PAROXETINE HYDROCHLORIDE
     Dosage: 20 MG, 1X/DAY
     Route: 048
  17. FINASTERIDE. [Concomitant]
     Active Substance: FINASTERIDE
     Dosage: 5 MG, 1X/DAY
     Route: 048
  18. LOVASTATIN. [Concomitant]
     Active Substance: LOVASTATIN
     Dosage: 320 MG, 1X/DAY
     Route: 048
  19. LISINOPRIL AND HYDROCHLOROTHIAZIDE [Concomitant]
     Active Substance: HYDROCHLOROTHIAZIDE\LISINOPRIL
     Dosage: 1 DF, 1X/DAY; [LISINOPRIL 10 MG]/[HYDROCHLOROTHIAZIDE 12.5 MG]
     Route: 048
  20. TESTOSTERONE CYPIONATE. [Concomitant]
     Active Substance: TESTOSTERONE CYPIONATE
     Dosage: 1 ML, UNK (200 MG/ML OIL 1 ML (WITH SYRINGES) INTRAMUSCULAR EVERY 2 WEEKS)
     Route: 030
  21. IMITREX [Concomitant]
     Active Substance: SUMATRIPTAN SUCCINATE
     Indication: HEADACHE
     Dosage: 50 MG, AS NEEDED; (MAY REPEAT IN 2 HOURS IF NO RELIEF)
     Route: 048
  22. PLAVIX [Concomitant]
     Active Substance: CLOPIDOGREL BISULFATE
     Dosage: 75 MG, 1X/DAY
     Route: 048

REACTIONS (1)
  - Drug ineffective [Unknown]
